FAERS Safety Report 13740495 (Version 1)
Quarter: 2017Q3

REPORT INFORMATION
  Report Type: Spontaneous
  Country: US (occurrence: US)
  Receive Date: 20170711
  Receipt Date: 20170711
  Transmission Date: 20171127
  Serious: No
  Sender: FDA-Public Use
  Company Number: US-009507513-1706USA005761

PATIENT

DRUGS (2)
  1. PRINIVIL [Interacting]
     Active Substance: LISINOPRIL
     Indication: HYPERTENSION
     Route: 048
  2. SINEMET [Suspect]
     Active Substance: CARBIDOPA\LEVODOPA
     Dosage: 2 DF, TID
     Route: 048

REACTIONS (2)
  - Abdominal distension [Unknown]
  - Drug interaction [Unknown]

NARRATIVE: CASE EVENT DATE: 20170525
